FAERS Safety Report 9909590 (Version 10)
Quarter: 2015Q4

REPORT INFORMATION
  Report Type: Report from Study
  Country: JP (occurrence: JP)
  Receive Date: 20140219
  Receipt Date: 20151007
  Transmission Date: 20160305
  Serious: Yes (Hospitalization)
  Sender: FDA-Public Use
  Company Number: JP-PFIZER INC-2014035898

PATIENT
  Age: 56 Year
  Sex: Male
  Weight: 73 kg

DRUGS (18)
  1. ASPELLIN [Concomitant]
     Indication: NASOPHARYNGITIS
     Dosage: UNK
  2. NORVASC [Suspect]
     Active Substance: AMLODIPINE BESYLATE
     Indication: HYPERTENSION
     Dosage: 5 MG, 1X/DAY
     Route: 048
  3. ARTIST [Concomitant]
     Active Substance: CARVEDILOL
     Indication: CARDIAC FAILURE CHRONIC
     Dosage: 2.5 MG, 2X/DAY
     Route: 048
  4. NEUMETHYCOLE [Concomitant]
     Indication: NEUROPATHY PERIPHERAL
     Dosage: 500 UG, 3X/DAY
     Route: 048
  5. ZETIA [Concomitant]
     Active Substance: EZETIMIBE
     Indication: DYSLIPIDAEMIA
     Dosage: 10 MG, 1X/DAY
     Route: 048
  6. PELEX [Concomitant]
     Active Substance: CETYLPYRIDINIUM CHLORIDE\CHLORPHENIRAMINE MALEATE\GLYCYRRHIZINATE DIPOTASSIUM
     Indication: NASOPHARYNGITIS
     Dosage: UNK
     Route: 048
  7. GOREI-SAN [Concomitant]
     Active Substance: HERBALS
     Indication: DIABETES MELLITUS
     Dosage: 2.5 G, 3X/DAY
     Route: 048
  8. DIART [Suspect]
     Active Substance: AZOSEMIDE
     Indication: CARDIAC FAILURE CHRONIC
     Dosage: 60 MG, 2X/DAY
     Route: 048
  9. ALLERMIST [Concomitant]
     Active Substance: FLUTICASONE FUROATE
     Indication: RHINITIS ALLERGIC
     Dosage: UNK
     Route: 045
  10. PLACEBO [Suspect]
     Active Substance: UNSPECIFIED INGREDIENT
     Indication: CARDIAC FAILURE CHRONIC
     Dosage: UNK
     Route: 048
     Dates: start: 20110625, end: 20140815
  11. SIGMART [Concomitant]
     Active Substance: NICORANDIL
     Indication: MYOCARDIAL ISCHAEMIA
     Dosage: 5 MG, 3X/DAY
     Route: 048
  12. STICK ZENOL [Concomitant]
     Indication: PAIN IN EXTREMITY
     Dosage: UNK
     Route: 062
  13. BLOPRESS [Suspect]
     Active Substance: CANDESARTAN CILEXETIL
     Indication: CARDIAC FAILURE CHRONIC
     Dosage: 8 MG, 1X/DAY
     Route: 048
  14. BAYASPIRIN [Concomitant]
     Active Substance: ASPIRIN
     Indication: MYOCARDIAL ISCHAEMIA
     Dosage: 100 MG, 1X/DAY
     Route: 048
  15. PARIET [Concomitant]
     Active Substance: RABEPRAZOLE SODIUM
     Indication: GASTRITIS
     Dosage: 10 MG, 1X/DAY
     Route: 048
  16. WARFARIN [Concomitant]
     Active Substance: WARFARIN
     Indication: VASCULAR OCCLUSION
     Dosage: 1.5 MG, 1X/DAY
     Route: 048
  17. LANTUS [Concomitant]
     Active Substance: INSULIN GLARGINE
     Indication: DIABETES MELLITUS
     Dosage: 16 IU, 1X/DAY (BEFORE BED)
     Route: 058
  18. NOVORAPID [Concomitant]
     Active Substance: INSULIN ASPART
     Indication: DIABETES MELLITUS
     Dosage: 6 IU IN THE MORNING, 6 IU IN THE AFTERNOON, 4 IU IN THE EVENING
     Route: 058

REACTIONS (2)
  - Cardiac failure [Recovered/Resolved]
  - Renal impairment [Not Recovered/Not Resolved]

NARRATIVE: CASE EVENT DATE: 20120330
